FAERS Safety Report 20298389 (Version 1)
Quarter: 2022Q1

REPORT INFORMATION
  Report Type: Report from Study
  Country: FR (occurrence: FR)
  Receive Date: 20220105
  Receipt Date: 20220105
  Transmission Date: 20220423
  Serious: Yes (Death)
  Sender: FDA-Public Use
  Company Number: FR-ELI_LILLY_AND_COMPANY-FR202201000232

PATIENT

DRUGS (2)
  1. GEMCITABINE HYDROCHLORIDE [Suspect]
     Active Substance: GEMCITABINE HYDROCHLORIDE
     Indication: Biliary neoplasm
     Dosage: 1000 MG/M2, DAILY ON DAYS 1 AND 8 EVERY 21 DAYS
     Route: 065
  2. CISPLATIN [Concomitant]
     Active Substance: CISPLATIN
     Indication: Biliary neoplasm
     Dosage: 25 MG/M2, DAILY ON DAYS 1 AND 8 EVERY 21 DAYS
     Route: 065

REACTIONS (2)
  - Jaundice [Fatal]
  - Intestinal obstruction [Fatal]
